FAERS Safety Report 18680798 (Version 3)
Quarter: 2021Q4

REPORT INFORMATION
  Report Type: Report from Study
  Country: US (occurrence: US)
  Receive Date: 20201229
  Receipt Date: 20211013
  Transmission Date: 20220304
  Serious: Yes (Hospitalization, Other)
  Sender: FDA-Public Use
  Company Number: US-ONCOLOGY-CLO-2020-002024

PATIENT
  Age: 55 Year
  Sex: Female

DRUGS (5)
  1. RUBRACA [Suspect]
     Active Substance: RUCAPARIB CAMSYLATE
     Indication: Ovarian cancer
     Dosage: 600 MILLIGRAM, BID
     Route: 048
     Dates: start: 202010, end: 202011
  2. RUBRACA [Suspect]
     Active Substance: RUCAPARIB CAMSYLATE
     Dosage: 300 MILLIGRAM, BID
     Route: 048
     Dates: start: 202101, end: 20210514
  3. RUBRACA [Suspect]
     Active Substance: RUCAPARIB CAMSYLATE
     Dosage: 2 TABS BID
     Route: 048
     Dates: start: 20210812
  4. RUBRACA [Suspect]
     Active Substance: RUCAPARIB CAMSYLATE
     Dosage: 300 MILLIGRAM, BID
     Route: 048
     Dates: start: 202101, end: 2021
  5. RUBRACA [Suspect]
     Active Substance: RUCAPARIB CAMSYLATE
     Dosage: 300 MILLIGRAM, BID
     Route: 048
     Dates: start: 20210923

REACTIONS (23)
  - Urinary tract stoma complication [Unknown]
  - Vesical fistula [Unknown]
  - Neoplasm progression [Not Recovered/Not Resolved]
  - Abdominal pain [Not Recovered/Not Resolved]
  - Kidney infection [Recovering/Resolving]
  - Urinary tract infection [Unknown]
  - Kidney infection [Unknown]
  - Escherichia bacteraemia [Unknown]
  - Palpitations [Unknown]
  - Weight increased [Unknown]
  - Somnolence [Unknown]
  - Hypertonic bladder [Unknown]
  - Paraesthesia oral [Not Recovered/Not Resolved]
  - Constipation [Recovered/Resolved]
  - Rash pruritic [Recovered/Resolved]
  - Abdominal distension [Recovering/Resolving]
  - Abdominal discomfort [Unknown]
  - Carbohydrate antigen 125 increased [Not Recovered/Not Resolved]
  - Taste disorder [Recovered/Resolved]
  - Taste disorder [Recovering/Resolving]
  - Fatigue [Unknown]
  - Diarrhoea [Unknown]
  - Product dose omission issue [Unknown]

NARRATIVE: CASE EVENT DATE: 20201001
